FAERS Safety Report 14035142 (Version 1)
Quarter: 2017Q4

REPORT INFORMATION
  Report Type: Spontaneous
  Country: GR (occurrence: GR)
  Receive Date: 20171003
  Receipt Date: 20171003
  Transmission Date: 20180321
  Serious: Yes (Other)
  Sender: FDA-Public Use
  Company Number: PHHY2017GR140417

PATIENT
  Age: 58 Year
  Sex: Female

DRUGS (1)
  1. DEFEROXAMINE [Suspect]
     Active Substance: DEFEROXAMINE\DEFEROXAMINE MESYLATE
     Indication: THALASSAEMIA BETA
     Dosage: UNK
     Route: 058

REACTIONS (4)
  - Macular dystrophy congenital [Unknown]
  - Vision blurred [Unknown]
  - Metamorphopsia [Unknown]
  - Deposit eye [Unknown]
